FAERS Safety Report 5410216-3 (Version None)
Quarter: 2007Q3

REPORT INFORMATION
  Report Type: 
  Country: None (occurrence: None)
  Receive Date: 20070713
  Receipt Date: 20070417
  Transmission Date: 20080115
  Serious: No
  Sender: FDA-Public Use
  Company Number: 2007SP001388

PATIENT
  Age: 69 Year
  Sex: Female
  Weight: 56.6996 kg

DRUGS (8)
  1. LUNESTA [Suspect]
     Indication: INSOMNIA
     Dosage: 2 MG;ORAL; 1.5 MG;ORAL; 1 MG;1X;ORAL; 2 MG;HS;ORAL; 1 MG;PRN;ORAL
     Route: 048
     Dates: start: 20060101, end: 20060101
  2. LUNESTA [Suspect]
     Indication: INSOMNIA
     Dosage: 2 MG;ORAL; 1.5 MG;ORAL; 1 MG;1X;ORAL; 2 MG;HS;ORAL; 1 MG;PRN;ORAL
     Route: 048
     Dates: start: 20060101, end: 20060101
  3. LUNESTA [Suspect]
     Indication: INSOMNIA
     Dosage: 2 MG;ORAL; 1.5 MG;ORAL; 1 MG;1X;ORAL; 2 MG;HS;ORAL; 1 MG;PRN;ORAL
     Route: 048
     Dates: start: 20070414, end: 20070415
  4. LUNESTA [Suspect]
     Indication: INSOMNIA
     Dosage: 2 MG;ORAL; 1.5 MG;ORAL; 1 MG;1X;ORAL; 2 MG;HS;ORAL; 1 MG;PRN;ORAL
     Route: 048
     Dates: start: 20070416, end: 20070416
  5. LUNESTA [Suspect]
     Indication: INSOMNIA
     Dosage: 2 MG;ORAL; 1.5 MG;ORAL; 1 MG;1X;ORAL; 2 MG;HS;ORAL; 1 MG;PRN;ORAL
     Route: 048
     Dates: start: 20070417, end: 20070423
  6. ACIPHEX [Concomitant]
  7. ZOLOFT [Concomitant]
  8. VITAMINS [Concomitant]

REACTIONS (1)
  - DYSGEUSIA [None]
